FAERS Safety Report 19209827 (Version 1)
Quarter: 2021Q2

REPORT INFORMATION
  Report Type: Spontaneous
  Country: US (occurrence: US)
  Receive Date: 20210504
  Receipt Date: 20210504
  Transmission Date: 20210717
  Serious: No
  Sender: FDA-Public Use
  Company Number: US-FARMAPROD-202103-0360

PATIENT
  Sex: Male

DRUGS (19)
  1. TOUJEO [Concomitant]
     Active Substance: INSULIN GLARGINE
  2. VITAMIN D3 [Concomitant]
     Active Substance: CHOLECALCIFEROL
  3. MULTIVITAMIN [Concomitant]
     Active Substance: VITAMINS
  4. HUMALOG [Concomitant]
     Active Substance: INSULIN LISPRO
  5. CRESTOR [Concomitant]
     Active Substance: ROSUVASTATIN CALCIUM
  6. CALCIUM/MINERALS [Concomitant]
  7. ASPIRIN. [Concomitant]
     Active Substance: ASPIRIN
  8. FLONASE [Concomitant]
     Active Substance: FLUTICASONE PROPIONATE
  9. ZINC. [Concomitant]
     Active Substance: ZINC
  10. IRON [Concomitant]
     Active Substance: IRON
  11. NORVASC [Concomitant]
     Active Substance: AMLODIPINE BESYLATE
  12. GABAPENTIN. [Concomitant]
     Active Substance: GABAPENTIN
  13. NITRO?DUR [Concomitant]
     Active Substance: NITROGLYCERIN
  14. CARVEDILOL. [Concomitant]
     Active Substance: CARVEDILOL
  15. OXERVATE [Suspect]
     Active Substance: CENEGERMIN-BKBJ
     Indication: NEUROTROPHIC KERATOPATHY
     Route: 047
     Dates: start: 20210205
  16. OXERVATE [Suspect]
     Active Substance: CENEGERMIN-BKBJ
     Indication: HYPOAESTHESIA EYE
  17. FUROSEMIDE. [Concomitant]
     Active Substance: FUROSEMIDE
  18. ZETIA [Concomitant]
     Active Substance: EZETIMIBE
  19. SODIUM BICARBONATE. [Concomitant]
     Active Substance: SODIUM BICARBONATE

REACTIONS (1)
  - Wrong technique in product usage process [Unknown]
